FAERS Safety Report 7291046-7 (Version None)
Quarter: 2011Q1

REPORT INFORMATION
  Report Type: 
  Country: None (occurrence: None)
  Receive Date: 20110214
  Receipt Date: 20110209
  Transmission Date: 20110831
  Serious: Yes (Death, Hospitalization, Other)
  Sender: FDA-Public Use
  Company Number: GB-ABBOTT-10P-167-0679975-00

PATIENT
  Sex: Female
  Weight: 54 kg

DRUGS (15)
  1. ATENOLOL [Concomitant]
     Indication: PRODUCT USED FOR UNKNOWN INDICATION
     Dates: start: 20030205
  2. CO-DYDRAMOL [Concomitant]
     Indication: PRODUCT USED FOR UNKNOWN INDICATION
     Dates: start: 20030205
  3. SULPHASALAZINE [Concomitant]
     Indication: PRODUCT USED FOR UNKNOWN INDICATION
  4. AMITRIPTYLINE HCL [Concomitant]
     Indication: PRODUCT USED FOR UNKNOWN INDICATION
     Dates: start: 20030205
  5. BENDROFLUMETHIAZIDE [Concomitant]
     Indication: PRODUCT USED FOR UNKNOWN INDICATION
  6. HUMIRA [Suspect]
     Indication: RHEUMATOID ARTHRITIS
     Route: 058
     Dates: start: 20080317, end: 20090515
  7. LIVIAL [Concomitant]
     Indication: PRODUCT USED FOR UNKNOWN INDICATION
     Dates: start: 20030205
  8. TRAMADOL [Concomitant]
     Indication: PRODUCT USED FOR UNKNOWN INDICATION
  9. FOLIC ACID [Concomitant]
     Indication: PRODUCT USED FOR UNKNOWN INDICATION
     Dates: start: 20030205
  10. METHOTREXATE [Concomitant]
     Indication: PRODUCT USED FOR UNKNOWN INDICATION
     Dates: start: 20030205
  11. CODEINE SULFATE [Concomitant]
     Indication: PRODUCT USED FOR UNKNOWN INDICATION
     Dates: start: 20030205
  12. LEFLUNOMIDE [Concomitant]
     Indication: PRODUCT USED FOR UNKNOWN INDICATION
     Dates: start: 20030205
  13. ASPIRIN [Concomitant]
     Indication: PRODUCT USED FOR UNKNOWN INDICATION
     Dates: start: 20030205
  14. MELOXICAM [Concomitant]
     Indication: PRODUCT USED FOR UNKNOWN INDICATION
  15. FERROUS FUMARATE [Concomitant]
     Indication: PRODUCT USED FOR UNKNOWN INDICATION

REACTIONS (19)
  - SOMNOLENCE [None]
  - SEPTIC SHOCK [None]
  - BLOOD LACTATE DEHYDROGENASE ABNORMAL [None]
  - METABOLIC ACIDOSIS [None]
  - BLOOD GLUCOSE DECREASED [None]
  - GENERAL PHYSICAL CONDITION ABNORMAL [None]
  - SEPSIS [None]
  - WOUND INFECTION STAPHYLOCOCCAL [None]
  - OSTEOMYELITIS [None]
  - PERICARDITIS INFECTIVE [None]
  - HAEMORRHAGE [None]
  - SKIN ULCER [None]
  - DECUBITUS ULCER [None]
  - MULTI-ORGAN FAILURE [None]
  - ANURIA [None]
  - RENAL FAILURE ACUTE [None]
  - ABNORMAL CLOTTING FACTOR [None]
  - MOBILITY DECREASED [None]
  - CIRCULATORY COLLAPSE [None]
